FAERS Safety Report 17814288 (Version 2)
Quarter: 2020Q2

REPORT INFORMATION
  Report Type: Spontaneous
  Country: FR (occurrence: FR)
  Receive Date: 20200521
  Receipt Date: 20200608
  Transmission Date: 20200714
  Serious: Yes (Death, Life-Threatening)
  Sender: FDA-Public Use
  Company Number: FR-BAXTER-2020BAX010039

PATIENT
  Age: 11 Day
  Sex: Male

DRUGS (1)
  1. CHLORURE DE SODIUM A 0,9 POUR CENT BAXTER, SOLUTION POUR PERFUSION EN [Suspect]
     Active Substance: SODIUM CHLORIDE
     Indication: HYPOTENSION
     Dosage: PROAMP SODIUM CHLORIDE 0.20 G/ML, CONCENTRATE FOR SOLUTION FOR INFUSION
     Route: 041
     Dates: start: 20200416, end: 20200416

REACTIONS (8)
  - Hyperchloraemia [Recovered/Resolved]
  - Wrong strength [Fatal]
  - Brain hypoxia [Fatal]
  - Acidosis [Recovered/Resolved]
  - Hypernatraemia [Recovered/Resolved]
  - Renal failure [Not Recovered/Not Resolved]
  - Blood lactic acid increased [Recovered/Resolved]
  - Cardiac arrest [Fatal]

NARRATIVE: CASE EVENT DATE: 202004
